FAERS Safety Report 8816656 (Version 1)
Quarter: 2012Q4

REPORT INFORMATION
  Report Type: Spontaneous
  Country: CA (occurrence: None)
  Receive Date: 20120928
  Receipt Date: 20120928
  Transmission Date: 20130627
  Serious: Yes (Other)
  Sender: FDA-Public Use
  Company Number: 2012P1059078

PATIENT
  Age: 16 Year
  Sex: Male

DRUGS (4)
  1. LORAZEPAM [Suspect]
  2. ACETAMINOPHEN [Suspect]
  3. RISPERIDONE [Suspect]
  4. RISPERIDONE [Suspect]

REACTIONS (10)
  - Persecutory delusion [None]
  - Grandiosity [None]
  - Neologism [None]
  - Neuroleptic malignant syndrome [None]
  - Thought insertion [None]
  - Thought withdrawal [None]
  - Muscle rigidity [None]
  - Hypertonia [None]
  - Intentional drug misuse [None]
  - Unevaluable event [None]
